FAERS Safety Report 8778001 (Version 1)
Quarter: 2012Q4

REPORT INFORMATION
  Report Type: 
  Country: US (occurrence: US)
  Receive Date: 20120912
  Receipt Date: 20120912
  Transmission Date: 20130627
  Serious: No
  Sender: FDA-Public Use
  Company Number: US-JNJFOC-20120813775

PATIENT
  Sex: Male
  Weight: 99.79 kg

DRUGS (11)
  1. DURAGESIC [Suspect]
     Indication: MUSCULOSKELETAL PAIN
     Route: 062
  2. DURAGESIC [Suspect]
     Indication: MUSCULOSKELETAL PAIN
     Route: 062
  3. DURAGESIC [Suspect]
     Indication: MUSCULOSKELETAL PAIN
     Route: 062
  4. DURAGESIC [Suspect]
     Indication: MUSCULOSKELETAL PAIN
     Route: 062
  5. DURAGESIC [Suspect]
     Indication: NECK PAIN
     Route: 062
  6. DURAGESIC [Suspect]
     Indication: NECK PAIN
     Route: 062
  7. DURAGESIC [Suspect]
     Indication: NECK PAIN
     Route: 062
  8. DURAGESIC [Suspect]
     Indication: NECK PAIN
     Route: 062
  9. DURAGESIC [Suspect]
     Indication: MUSCULOSKELETAL PAIN
     Route: 062
  10. DURAGESIC [Suspect]
     Indication: NECK PAIN
     Route: 062
  11. VICODIN [Concomitant]
     Indication: BREAKTHROUGH PAIN
     Route: 048

REACTIONS (6)
  - Drug ineffective [Not Recovered/Not Resolved]
  - Product quality issue [Unknown]
  - Wrong technique in drug usage process [Not Recovered/Not Resolved]
  - Wrong technique in drug usage process [Not Recovered/Not Resolved]
  - Therapeutic response decreased [Not Recovered/Not Resolved]
  - Wrong technique in drug usage process [Unknown]
